FAERS Safety Report 4372804-5 (Version None)
Quarter: 2004Q2

REPORT INFORMATION
  Report Type: 
  Country: None (occurrence: None)
  Receive Date: 20040526
  Receipt Date: 20040514
  Transmission Date: 20050107
  Serious: Yes (Other)
  Sender: FDA-Public Use
  Company Number: 2004028906

PATIENT
  Age: 65 Year
  Sex: Female
  Weight: 58.9676 kg

DRUGS (19)
  1. LIPITOR [Suspect]
     Indication: BLOOD CHOLESTEROL INCREASED
     Dosage: 10 MG (1 IN 1 D), ORAL
     Route: 048
     Dates: start: 19991025, end: 29931223
  2. RANITDINE HYDROCHLROIDE (RANITIDINE HYDROCHLORIDE) [Concomitant]
  3. FISH OIL (FISH OIL) [Concomitant]
  4. MAGNESIUM (MAGNESIUM) [Concomitant]
  5. LEVOTHYROXINE SODIUM (LEVOTHYROXINE) [Concomitant]
  6. GLICLAZIDE GLICLAZIDE) [Concomitant]
  7. ALL OTHER THERAPEUTIC PRODUCTS (ALL OTHER THERAPEUTIC) [Concomitant]
  8. VALDECOXIB [Concomitant]
  9. CALCIUM CITRATE (CALCIUM CITRATE) [Concomitant]
  10. MULTIVITAMINS (ASCORBIC ACID, ERGOCALCIFEROL, FOLIC ACID, NICOTANAMIDE [Concomitant]
  11. ACETAMINOPHEN [Concomitant]
  12. CYANOCOBATLAMIN (CYANOCOBALAMIN) [Concomitant]
  13. CHLOROPHYLLIN SODIUM COPPER (CHLOROPHYLLIN SODIUM COPPER COMPLEX) [Concomitant]
  14. BETACAROTENE (VETACAROTENE) [Concomitant]
  15. TOCOPHEROL CONCENTRATE CAP [Concomitant]
  16. THIAMINE HCL [Concomitant]
  17. GLUCOSAMINE W/CHONDROITAN SULFATES (ASCORBIC ACID, CHONDROITIN SULFATE [Concomitant]
  18. ASCORBIC ACID (ASOCRBIC ACID) [Concomitant]
  19. RALOXIFENE HCL [Concomitant]

REACTIONS (4)
  - ARTHRITIS [None]
  - GASTRIC CANCER [None]
  - MUSCLE CRAMP [None]
  - MYALGIA [None]
